FAERS Safety Report 7366946-X (Version None)
Quarter: 2011Q1

REPORT INFORMATION
  Report Type: 
  Country: None (occurrence: None)
  Receive Date: 20110310
  Receipt Date: 20110302
  Transmission Date: 20110831
  Serious: Yes (Death, Hospitalization)
  Sender: FDA-Public Use
  Company Number: 2011EN000060

PATIENT
  Age: 78 Year
  Sex: Male

DRUGS (17)
  1. VANCOMYCIN [Concomitant]
  2. MITOXANTRONE [Concomitant]
  3. MEROPENEM [Concomitant]
  4. COMYCIN [Concomitant]
  5. TIGECYCLINE [Concomitant]
  6. ABELCET [Suspect]
     Indication: NEUTROPHILIA
     Dosage: 105 MG; X1; IV
     Route: 042
     Dates: start: 20110216, end: 20110216
  7. TRIATEC [Concomitant]
  8. CYTARABINE [Concomitant]
  9. ATACAND [Concomitant]
  10. DEXTROSE POTASSIUM AND SODIUM [Concomitant]
  11. PIPERACILLIN [Concomitant]
  12. AMIKACIN [Concomitant]
  13. NOXAFIL [Concomitant]
  14. SPIRONOLACTONE [Concomitant]
  15. LOPRESSOR [Concomitant]
  16. DAPTOMYCIN [Concomitant]
  17. DALACIN [Concomitant]

REACTIONS (5)
  - PULMONARY OEDEMA [None]
  - ACUTE PULMONARY OEDEMA [None]
  - ACUTE MYOCARDIAL INFARCTION [None]
  - HYPOKALAEMIA [None]
  - ILEUS PARALYTIC [None]
